FAERS Safety Report 10505804 (Version 1)
Quarter: 2014Q4

REPORT INFORMATION
  Report Type: Report from Study
  Country: BR (occurrence: BR)
  Receive Date: 20141008
  Receipt Date: 20141008
  Transmission Date: 20150528
  Serious: Yes (Other)
  Sender: FDA-Public Use
  Company Number: PHHY2014BR130296

PATIENT
  Sex: Female
  Weight: 28 kg

DRUGS (6)
  1. RIVOTRIL [Suspect]
     Active Substance: CLONAZEPAM
     Indication: AGITATION
     Dosage: 10 DRP DAILY IN THE MORNING AND AT NIGHT
     Route: 048
  2. PARACETAMOL [Concomitant]
     Active Substance: ACETAMINOPHEN
     Indication: PAIN
     Dosage: UNK
     Dates: end: 20140910
  3. PARACETAMOL [Concomitant]
     Active Substance: ACETAMINOPHEN
     Indication: PYREXIA
  4. RITALIN LA [Suspect]
     Active Substance: METHYLPHENIDATE HYDROCHLORIDE
     Indication: ATTENTION DEFICIT/HYPERACTIVITY DISORDER
     Dosage: 1 DF, QD (FREQUENCY OF ONCE DAILY)
  5. TRILEPTAL [Suspect]
     Active Substance: OXCARBAZEPINE
     Indication: ANXIOLYTIC THERAPY
     Dosage: 10 ML, QD (ONCE DAILY)
     Route: 048
  6. DEPAKOTE [Suspect]
     Active Substance: DIVALPROEX SODIUM
     Indication: AFFECTIVE DISORDER
     Dosage: 2 DF, BID
     Route: 048

REACTIONS (12)
  - Rebound effect [Recovering/Resolving]
  - Fall [Recovering/Resolving]
  - Pyrexia [Recovering/Resolving]
  - Agitation [Recovering/Resolving]
  - Seizure [Recovering/Resolving]
  - Viral infection [Recovering/Resolving]
  - Poor quality sleep [Recovering/Resolving]
  - Pain [Recovering/Resolving]
  - Therapeutic response unexpected [Recovering/Resolving]
  - Somnolence [Recovering/Resolving]
  - Depression [Recovering/Resolving]
  - Sensory disturbance [Recovering/Resolving]
